FAERS Safety Report 12488968 (Version 1)
Quarter: 2016Q2

REPORT INFORMATION
  Report Type: Spontaneous
  Country: SE (occurrence: SE)
  Receive Date: 20160622
  Receipt Date: 20160622
  Transmission Date: 20160815
  Serious: Yes (Hospitalization)
  Sender: FDA-Public Use
  Company Number: SE-TEVA-667764ACC

PATIENT
  Age: 81 Year
  Sex: Female

DRUGS (3)
  1. DOXYCYCLINE. [Suspect]
     Active Substance: DOXYCYCLINE
     Indication: PNEUMONIA
     Dates: start: 20160411, end: 20160414
  2. KAVEPENIN [Interacting]
     Active Substance: PHENOXYMETHYLPENICILLIN CALCIUM
     Indication: PNEUMONIA
     Dates: start: 20160415
  3. WARAN [Interacting]
     Active Substance: WARFARIN SODIUM

REACTIONS (2)
  - Abdominal wall haematoma [Unknown]
  - Drug interaction [Unknown]

NARRATIVE: CASE EVENT DATE: 20160417
